FAERS Safety Report 5759418-7 (Version None)
Quarter: 2008Q2

REPORT INFORMATION
  Report Type: 
  Country: None (occurrence: None)
  Receive Date: 20080604
  Receipt Date: 20080604
  Transmission Date: 20081010
  Serious: No
  Sender: FDA-Public Use
  Company Number: None

PATIENT
  Sex: Female
  Weight: 72.5755 kg

DRUGS (1)
  1. DIGITEK 250MCG, BERTEK PHARM [Suspect]
     Indication: CARDIAC DISORDER
     Dosage: 1 TABLET ONCE/DAY
     Dates: start: 20071207, end: 20080510

REACTIONS (3)
  - HEART RATE DECREASED [None]
  - LETHARGY [None]
  - SOMNOLENCE [None]
